FAERS Safety Report 4477214-8 (Version None)
Quarter: 2004Q4

REPORT INFORMATION
  Report Type: 
  Country: None (occurrence: None)
  Receive Date: 20041018
  Receipt Date: 20041008
  Transmission Date: 20050328
  Serious: Yes (Other)
  Sender: FDA-Public Use
  Company Number: US-MERCK-0410USA01401

PATIENT
  Age: 65 Year
  Sex: Female

DRUGS (1)
  1. VIOXX [Suspect]
     Indication: BACK PAIN
     Route: 065
     Dates: start: 20040101, end: 20041002

REACTIONS (5)
  - ARTHRALGIA [None]
  - MOBILITY DECREASED [None]
  - MONOPLEGIA [None]
  - POLLAKIURIA [None]
  - STOMACH DISCOMFORT [None]
